FAERS Safety Report 26144523 (Version 1)
Quarter: 2025Q4

REPORT INFORMATION
  Report Type: Spontaneous
  Country: EU (occurrence: EU)
  Receive Date: 20251211
  Receipt Date: 20251211
  Transmission Date: 20260118
  Serious: Yes (Other)
  Sender: ORGANON
  Company Number: EU-RATIOPH-2009R1109479

PATIENT
  Age: 63 Year
  Sex: Male

DRUGS (3)
  1. MIRTAZAPINE [Interacting]
     Active Substance: MIRTAZAPINE
     Indication: Depression
     Dosage: 15 MG/DAY
  2. DULOXETINE [Interacting]
     Active Substance: DULOXETINE
     Indication: Depression
     Dosage: 120 MG/DAY
  3. TRAMADOL [Concomitant]
     Active Substance: TRAMADOL
     Dosage: 100 MG/DAY

REACTIONS (3)
  - Hepatotoxicity [Recovered/Resolved]
  - Cholestatic liver injury [Recovered/Resolved]
  - Drug interaction [Unknown]
